FAERS Safety Report 21644635 (Version 2)
Quarter: 2023Q1

REPORT INFORMATION
  Report Type: Other
  Country: US (occurrence: None)
  Receive Date: 20221125
  Receipt Date: 20230330
  Transmission Date: 20230417
  Serious: Yes (Other)
  Sender: FDA-Public Use
  Company Number: US-ROCHE-3224845

PATIENT
  Age: 64 Year
  Sex: Female

DRUGS (2)
  1. COBIMETINIB [Suspect]
     Active Substance: COBIMETINIB
     Indication: Craniopharyngioma
     Route: 065
  2. VEMURAFENIB [Suspect]
     Active Substance: VEMURAFENIB
     Indication: Craniopharyngioma
     Route: 065

REACTIONS (6)
  - Iridocyclitis [Recovered/Resolved]
  - Hepatotoxicity [Recovered/Resolved]
  - Renal failure [Recovered/Resolved]
  - Rash [Recovered/Resolved]
  - Fatigue [Recovered/Resolved]
  - Nausea [Recovered/Resolved]
